FAERS Safety Report 7475121-X (Version None)
Quarter: 2011Q2

REPORT INFORMATION
  Report Type: 
  Country: None (occurrence: None)
  Receive Date: 20110512
  Receipt Date: 20110504
  Transmission Date: 20111010
  Serious: Yes (Other)
  Sender: FDA-Public Use
  Company Number: US-US-EMD SERONO, INC.-7057951

PATIENT
  Sex: Female
  Weight: 82 kg

DRUGS (2)
  1. REBIF [Suspect]
     Indication: PRODUCT USED FOR UNKNOWN INDICATION
     Route: 058
     Dates: start: 20071104
  2. MOTRIN [Concomitant]
     Indication: PREMEDICATION

REACTIONS (2)
  - DIABETES MELLITUS [None]
  - INJECTION SITE ERYTHEMA [None]
